FAERS Safety Report 14913112 (Version 1)
Quarter: 2018Q2

REPORT INFORMATION
  Report Type: Report from Study
  Country: HN (occurrence: HN)
  Receive Date: 20180518
  Receipt Date: 20180518
  Transmission Date: 20180711
  Serious: Yes (Other)
  Sender: FDA-Public Use
  Company Number: PHHY2018HN009144

PATIENT
  Age: 87 Year
  Sex: Male

DRUGS (2)
  1. EXFORGE [Suspect]
     Active Substance: AMLODIPINE BESYLATE\VALSARTAN
     Dosage: 0.5 DF (AMLODIPINE 10 MG, VALSARTAN 320 MG), BID(HALF IN THE MORNING AND HALF IN THE NIGHT )
     Route: 065
  2. EXFORGE [Suspect]
     Active Substance: AMLODIPINE BESYLATE\VALSARTAN
     Indication: PRODUCT USED FOR UNKNOWN INDICATION
     Dosage: 1 DF (AMLODIPINE 5 MG, VALSARTAN 160 MG), UNK
     Route: 065
     Dates: start: 2016

REACTIONS (8)
  - Head discomfort [Unknown]
  - Visual impairment [Unknown]
  - Memory impairment [Unknown]
  - Wrong technique in product usage process [Unknown]
  - Cerebrovascular accident [Unknown]
  - Concomitant disease aggravated [Unknown]
  - Inappropriate schedule of drug administration [Unknown]
  - Drug prescribing error [Unknown]
